FAERS Safety Report 15260707 (Version 1)
Quarter: 2018Q3

REPORT INFORMATION
  Report Type: Spontaneous
  Country: US (occurrence: US)
  Receive Date: 20180809
  Receipt Date: 20180809
  Transmission Date: 20181010
  Serious: Yes (Hospitalization)
  Sender: FDA-Public Use
  Company Number: US-STRIDES ARCOLAB LIMITED-2018SP000395

PATIENT

DRUGS (7)
  1. ANTITHYMOCYTE IMMUNOGLOBULIN [Suspect]
     Active Substance: THYMOCYTE IMMUNE GLOBULIN NOS
     Indication: LUNG TRANSPLANT
     Dosage: UNK
     Route: 065
  2. TACROLIMUS. [Suspect]
     Active Substance: TACROLIMUS
     Indication: LUNG TRANSPLANT
     Dosage: UNK
     Route: 065
  3. AZATHIOPRINE. [Suspect]
     Active Substance: AZATHIOPRINE
     Indication: LUNG TRANSPLANT
     Dosage: UNK
     Route: 065
  4. PREDNISOLONE. [Suspect]
     Active Substance: PREDNISOLONE
     Indication: LUNG TRANSPLANT
     Dosage: UNK
     Route: 065
  5. LEFLUNOMIDE. [Suspect]
     Active Substance: LEFLUNOMIDE
     Dosage: 60 MG,DAILY
     Route: 065
  6. LEFLUNOMIDE. [Suspect]
     Active Substance: LEFLUNOMIDE
     Indication: LUNG TRANSPLANT
     Dosage: 20 MG, DAILY
     Route: 065
  7. LEFLUNOMIDE. [Suspect]
     Active Substance: LEFLUNOMIDE
     Dosage: 40 MG, UNKNOWN
     Route: 065

REACTIONS (13)
  - Prostate cancer metastatic [Unknown]
  - Encephalopathy [Unknown]
  - Metastases to liver [Unknown]
  - Headache [Unknown]
  - Abdominal pain [Unknown]
  - Weight decreased [Unknown]
  - Malaise [Unknown]
  - Confusional state [Unknown]
  - Polyomavirus-associated nephropathy [Unknown]
  - Pyrexia [Unknown]
  - Chronic kidney disease [Not Recovered/Not Resolved]
  - Haematuria [Unknown]
  - Transitional cell carcinoma [Unknown]
